FAERS Safety Report 26131913 (Version 1)
Quarter: 2025Q4

REPORT INFORMATION
  Report Type: Spontaneous
  Country: EU (occurrence: EU)
  Receive Date: 20251208
  Receipt Date: 20251208
  Transmission Date: 20260117
  Serious: Yes (Hospitalization, Other)
  Sender: PFIZER
  Company Number: EU-SA-SAC20220812000458

PATIENT
  Age: 39 Year
  Sex: Female

DRUGS (39)
  1. ETHINYL ESTRADIOL\LEVONORGESTREL [Suspect]
     Active Substance: ETHINYL ESTRADIOL\LEVONORGESTREL
     Dosage: UNK
  2. CHLORMADINONE ACETATE [Suspect]
     Active Substance: CHLORMADINONE ACETATE
     Indication: Heavy menstrual bleeding
     Dosage: 1 DF, QD
     Route: 065
     Dates: start: 20020523, end: 2008
  3. NOMEGESTROL ACETATE [Concomitant]
     Active Substance: NOMEGESTROL ACETATE
     Indication: Uterine leiomyoma
     Dates: start: 200708
  4. NOMEGESTROL ACETATE [Concomitant]
     Active Substance: NOMEGESTROL ACETATE
     Indication: Amenorrhoea
  5. NOMEGESTROL ACETATE [Concomitant]
     Active Substance: NOMEGESTROL ACETATE
     Indication: Ovarian cyst
  6. KEPPRA XR [Concomitant]
     Active Substance: LEVETIRACETAM
     Dosage: FREQ:12 H;1 DF, BID
  7. EFFEXOR [Concomitant]
     Active Substance: VENLAFAXINE HYDROCHLORIDE
     Dosage: 37.5 LP
  8. EFFEXOR [Concomitant]
     Active Substance: VENLAFAXINE HYDROCHLORIDE
     Dosage: 75 LP
  9. PREDNISOLONE METASULFOBENZOATE SODIUM [Concomitant]
     Active Substance: PREDNISOLONE SODIUM METAZOATE
     Dosage: 80 MG, QD
     Dates: start: 2019
  10. LINEZOLID [Concomitant]
     Active Substance: LINEZOLID
  11. LAMICTAL [Concomitant]
     Active Substance: LAMOTRIGINE
     Dosage: 100 MG, QD
  12. LAMICTAL [Concomitant]
     Active Substance: LAMOTRIGINE
     Dosage: 75 MG IN THE MORNING AND 50 MG IN THE EVENING FOR 15 DAYS
  13. LAMICTAL [Concomitant]
     Active Substance: LAMOTRIGINE
     Dosage: 75 MG IN THE MORNING AND 50 MG IN THE EVENING FOR 15 DAYS,
  14. LAMICTAL [Concomitant]
     Active Substance: LAMOTRIGINE
     Dosage: 100 MG/DAY
  15. LAMICTAL [Concomitant]
     Active Substance: LAMOTRIGINE
     Dosage: FREQ:12 H;75 MG IN THE MORNING AND75 MG IN THE EVENING LONG TERM
  16. NOMEGESTROL [Concomitant]
     Active Substance: NOMEGESTROL
  17. ESOMEPRAZOLE SODIUM [Concomitant]
     Active Substance: ESOMEPRAZOLE SODIUM
     Dosage: 1 DF, QD
  18. CETIRIZINE [Concomitant]
     Active Substance: CETIRIZINE HYDROCHLORIDE
     Dosage: 1 DF, QD
  19. TRAMADOL HYDROCHLORIDE [Concomitant]
     Active Substance: TRAMADOL HYDROCHLORIDE
     Dosage: FREQ:12 H;1 MG, BID (1MILLIGRAM AT 8H,1 MILLIGRAM AT 20H) FOR 7 DAYS
     Route: 042
     Dates: start: 20151031
  20. OXYCODONE HYDROCHLORIDE [Concomitant]
     Active Substance: OXYCODONE HYDROCHLORIDE
     Dosage: FREQ:6 H;1 DF, Q6H FOR 10 DAYS
     Route: 048
     Dates: start: 20151101
  21. ACETAMINOPHEN [Concomitant]
     Active Substance: ACETAMINOPHEN
     Dosage: FREQ:{ASNECESSARY};1 G, PRN
  22. EUPANTOL [Concomitant]
     Active Substance: PANTOPRAZOLE SODIUM
     Dosage: UNK, 2X/DAY
  23. METFORMIN [Concomitant]
     Active Substance: METFORMIN HYDROCHLORIDE
     Indication: Type 2 diabetes mellitus
     Dosage: FREQ:8 H;1 G, TID
  24. REPAGLINIDE [Concomitant]
     Active Substance: REPAGLINIDE
     Indication: Type 2 diabetes mellitus
     Dosage: FREQ:8 H;1 MG, TID
  25. EBASTINE [Concomitant]
     Active Substance: EBASTINE
     Dosage: UNK
  26. PANTOPRAZOLE [Concomitant]
     Active Substance: PANTOPRAZOLE
     Dosage: UNK
  27. POTASSIUM BITARTRATE\SODIUM BICARBONATE [Concomitant]
     Active Substance: POTASSIUM BITARTRATE\SODIUM BICARBONATE
     Dosage: UNK, AS NEEDED
  28. VALSARTAN [Concomitant]
     Active Substance: VALSARTAN
     Dosage: 2 DF, QD
  29. BILASTINE [Concomitant]
     Active Substance: BILASTINE
     Dosage: FREQ:8 H;1 DF, TID
  30. ESIDREX [Concomitant]
     Active Substance: HYDROCHLOROTHIAZIDE
     Dosage: 0.5 DF, QD (0.5 TABLET IN THE MORNING OR 12.5 MG)
  31. CLOBAZAM [Concomitant]
     Active Substance: CLOBAZAM
     Dosage: FREQ:12 H;1 DF, BID (1 TABLET AT 8H, 1 TABLET AT 18H)
  32. DAFALGAN [Concomitant]
     Active Substance: ACETAMINOPHEN
     Dosage: FREQ:6 H;2 DF, Q6H
  33. POVIDONE-IODINE [Concomitant]
     Active Substance: POVIDONE-IODINE
     Dosage: UNK
  34. DOLIPRANE [Concomitant]
     Active Substance: ACETAMINOPHEN
     Dosage: UNK
  35. LEUCOVORIN CALCIUM [Concomitant]
     Active Substance: LEUCOVORIN CALCIUM
     Dosage: FREQ:8 H;1 DF, TID (1 CAPSULE AT 8H FOR 36 DAYS)
  36. DESOGESTREL\ETHINYL ESTRADIOL [Concomitant]
     Active Substance: DESOGESTREL\ETHINYL ESTRADIOL
  37. FOLDINE [Concomitant]
     Dosage: UNK
  38. CHOLECALCIFEROL [Concomitant]
     Active Substance: CHOLECALCIFEROL
     Dosage: UNK
  39. KEPPRA [Concomitant]
     Active Substance: LEVETIRACETAM
     Dosage: FREQ:8 H;1 DF, TID (1 TABLET AT 8H, 1 TABLET AT 12H, 1 TABLET AT 19H)

REACTIONS (91)
  - Meningioma [Unknown]
  - Menometrorrhagia [Unknown]
  - Anaemia [Unknown]
  - Uterine leiomyoma [Unknown]
  - Purulent discharge [Unknown]
  - Scar [Unknown]
  - Pain [Unknown]
  - Epistaxis [Recovered/Resolved]
  - Coma [Unknown]
  - Headache [Not Recovered/Not Resolved]
  - Aphasia [Unknown]
  - Pseudomeningocele [Not Recovered/Not Resolved]
  - Lymphadenopathy [Not Recovered/Not Resolved]
  - Pain [Unknown]
  - Syncope [Unknown]
  - Generalised tonic-clonic seizure [Unknown]
  - Motor dysfunction [Unknown]
  - Altered state of consciousness [Unknown]
  - Hemiparesis [Not Recovered/Not Resolved]
  - Depressed level of consciousness [Unknown]
  - Cerebrospinal fluid leakage [Unknown]
  - Cerebrospinal fluid retention [Not Recovered/Not Resolved]
  - Hydrocephalus [Recovered/Resolved]
  - Hemianopia heteronymous [Unknown]
  - Hyperleukocytosis [Unknown]
  - Meningocele [Unknown]
  - Brain empyema [Unknown]
  - Periventricular leukomalacia [Unknown]
  - Encephalocele [Unknown]
  - Partial seizures [Unknown]
  - Optic atrophy [Unknown]
  - Suicidal ideation [Unknown]
  - Hemiplegia [Unknown]
  - Amenorrhoea [Unknown]
  - Pruritus [Unknown]
  - Mucosal atrophy [Unknown]
  - Intermenstrual bleeding [Unknown]
  - Head discomfort [Unknown]
  - Hyperacusis [Unknown]
  - Post procedural complication [Unknown]
  - Discomfort [Unknown]
  - Giant cell arteritis [Not Recovered/Not Resolved]
  - Fatigue [Unknown]
  - Anxiety [Unknown]
  - Dizziness [Unknown]
  - Sensory loss [Unknown]
  - Motor dysfunction [Unknown]
  - Urinary tract disorder [Unknown]
  - Somnolence [Unknown]
  - Depression [Unknown]
  - Thymus disorder [Unknown]
  - Fatigue [Unknown]
  - Mental disorder [Unknown]
  - Psychomotor hyperactivity [Unknown]
  - Vertigo [Unknown]
  - Nausea [Unknown]
  - Vomiting [Unknown]
  - Dermal cyst [Unknown]
  - Gait disturbance [Unknown]
  - Dysarthria [Unknown]
  - Speech disorder [Recovering/Resolving]
  - Craniofacial deformity [Unknown]
  - Vascular pseudoaneurysm [Unknown]
  - Wound secretion [Unknown]
  - Osteitis [Unknown]
  - Subcutaneous abscess [Unknown]
  - Language disorder [Unknown]
  - Hypoacusis [Unknown]
  - Urinary incontinence [Unknown]
  - Psychomotor retardation [Unknown]
  - Pruritus genital [Unknown]
  - Malaise [Unknown]
  - Monoparesis [Unknown]
  - Erythema [Unknown]
  - Face oedema [Unknown]
  - Uterine leiomyoma [Unknown]
  - Visual acuity reduced [Unknown]
  - Diplopia [Unknown]
  - Apraxia [Unknown]
  - Disturbance in attention [Unknown]
  - Chills [Unknown]
  - Clonus [Unknown]
  - Sensory disturbance [Unknown]
  - Dysphagia [Unknown]
  - Eating disorder [Unknown]
  - Ovarian cyst [Unknown]
  - Skin swelling [Unknown]
  - Migraine [Unknown]
  - Cranioplasty [Unknown]
  - Wound drainage [Unknown]
  - Skin graft [Unknown]

NARRATIVE: CASE EVENT DATE: 20140301
